FAERS Safety Report 13530690 (Version 1)
Quarter: 2017Q2

REPORT INFORMATION
  Report Type: Spontaneous
  Country: FR (occurrence: FR)
  Receive Date: 20170510
  Receipt Date: 20170510
  Transmission Date: 20170830
  Serious: Yes (Hospitalization)
  Sender: FDA-Public Use
  Company Number: FR-ROCHE-1931654

PATIENT
  Age: 39 Year
  Sex: Female

DRUGS (6)
  1. CYCLOPHOSPHAMIDE. [Concomitant]
     Active Substance: CYCLOPHOSPHAMIDE
     Dosage: 3 COURSES
     Route: 065
     Dates: start: 201607, end: 201609
  2. FLUOROURACIL. [Concomitant]
     Active Substance: FLUOROURACIL
     Dosage: 3 COURSES
     Route: 065
     Dates: start: 201607, end: 201609
  3. EPIRUBICIN [Concomitant]
     Active Substance: EPIRUBICIN
     Dosage: 3 COURSES
     Route: 065
     Dates: start: 201607, end: 201609
  4. TAXOTERE [Concomitant]
     Active Substance: DOCETAXEL
     Dosage: 4 COURSES
     Route: 065
     Dates: start: 201610, end: 201701
  5. HERCEPTIN [Suspect]
     Active Substance: TRASTUZUMAB
     Indication: BREAST CANCER
     Route: 042
     Dates: start: 201610, end: 201701
  6. HERCEPTIN [Suspect]
     Active Substance: TRASTUZUMAB
     Indication: BREAST CANCER
     Route: 058
     Dates: start: 201701, end: 20170120

REACTIONS (1)
  - Right ventricular ejection fraction decreased [Not Recovered/Not Resolved]

NARRATIVE: CASE EVENT DATE: 20170420
